FAERS Safety Report 13467879 (Version 1)
Quarter: 2017Q2

REPORT INFORMATION
  Report Type: Report from Study
  Country: None (occurrence: US)
  Receive Date: 20170421
  Receipt Date: 20170421
  Transmission Date: 20170830
  Serious: Yes (Other)
  Sender: FDA-Public Use
  Company Number: US-ABBVIE-17K-163-1947984-00

PATIENT
  Age: 22 Year
  Sex: Female

DRUGS (3)
  1. REMICADE [Concomitant]
     Active Substance: INFLIXIMAB
     Indication: CROHN^S DISEASE
     Dates: start: 20140826, end: 201606
  2. REMICADE [Concomitant]
     Active Substance: INFLIXIMAB
     Dates: start: 20141003, end: 20141217
  3. HUMIRA [Suspect]
     Active Substance: ADALIMUMAB
     Indication: CROHN^S DISEASE
     Route: 058
     Dates: start: 201501, end: 201606

REACTIONS (5)
  - Foetal death [Unknown]
  - Human chorionic gonadotropin decreased [Not Recovered/Not Resolved]
  - Abortion spontaneous [Unknown]
  - Exposure during pregnancy [Unknown]
  - Crohn^s disease [Not Recovered/Not Resolved]

NARRATIVE: CASE EVENT DATE: 2016
